FAERS Safety Report 4583801-9 (Version None)
Quarter: 2005Q1

REPORT INFORMATION
  Report Type: 
  Country: None (occurrence: None)
  Receive Date: 20050211
  Receipt Date: 20041118
  Transmission Date: 20050727
  Serious: Yes (Death)
  Sender: FDA-Public Use
  Company Number: AE-1104-290

PATIENT
  Age: 42 Year
  Sex: Female

DRUGS (11)
  1. LIDODERM [Suspect]
     Dosage: 10 PATCHES
  2. DURAGESIC [Concomitant]
  3. DIAZEPAM [Concomitant]
  4. NORDIAZEPAM [Concomitant]
  5. OXIZEPAM [Concomitant]
  6. CARISPOPRODOL [Concomitant]
  7. MEPROBAMATE [Concomitant]
  8. VENLAFAXINE HCL [Concomitant]
  9. DESMETHYLVENLAFAXINE [Concomitant]
  10. ETHANOL [Concomitant]
  11. FENTANYL [Concomitant]

REACTIONS (3)
  - ACCIDENTAL DEATH [None]
  - DRUG TOXICITY [None]
  - MEDICATION ERROR [None]
